FAERS Safety Report 14964980 (Version 1)
Quarter: 2018Q2

REPORT INFORMATION
  Report Type: Spontaneous
  Country: ES (occurrence: ES)
  Receive Date: 20180601
  Receipt Date: 20180601
  Transmission Date: 20180711
  Serious: Yes (Hospitalization)
  Sender: FDA-Public Use
  Company Number: ES-MYLANLABS-2018M1035076

PATIENT
  Age: 47 Year
  Sex: Male

DRUGS (5)
  1. PREDNISONE. [Concomitant]
     Active Substance: PREDNISONE
     Indication: ACUTE GENERALISED EXANTHEMATOUS PUSTULOSIS
     Dosage: 30 MG, QD
     Route: 048
  2. INDOMETACIN [Suspect]
     Active Substance: INDOMETHACIN
     Dosage: 50 MG, Q8H
     Route: 065
  3. PREDNISONE. [Concomitant]
     Active Substance: PREDNISONE
     Dosage: 5 MG, QD
     Route: 048
  4. PREDNISONE. [Concomitant]
     Active Substance: PREDNISONE
     Dosage: 1 MG/KG, QD
     Route: 042
  5. INDOMETACIN [Suspect]
     Active Substance: INDOMETHACIN
     Indication: ARTHRITIS
     Dosage: 25 MG, Q8H
     Route: 065

REACTIONS (4)
  - Condition aggravated [Recovered/Resolved]
  - Autoinflammatory disease [Recovered/Resolved]
  - Acute generalised exanthematous pustulosis [Recovered/Resolved]
  - Polyarthritis [Recovered/Resolved]
